FAERS Safety Report 10109676 (Version 2)
Quarter: 2014Q2

REPORT INFORMATION
  Report Type: Spontaneous
  Country: ZA (occurrence: ZA)
  Receive Date: 20140425
  Receipt Date: 20140425
  Transmission Date: 20141212
  Serious: Yes (Hospitalization, Other)
  Sender: FDA-Public Use
  Company Number: ZA-BAYER-2014-034167

PATIENT
  Age: 34 Year
  Sex: Female

DRUGS (1)
  1. MIRENA [Suspect]
     Indication: CONTRACEPTION
     Dosage: 20 MCG/24HR, CONT
     Route: 015
     Dates: start: 20131201, end: 20140226

REACTIONS (9)
  - Pelvic inflammatory disease [None]
  - Appendicitis [None]
  - Pelvic infection [None]
  - Salpingitis [None]
  - Abdominal pain lower [None]
  - Pyrexia [None]
  - Nausea [None]
  - Decreased appetite [None]
  - Abdominal rigidity [None]
